FAERS Safety Report 11496241 (Version 1)
Quarter: 2015Q3

REPORT INFORMATION
  Report Type: Report from Study
  Country: US (occurrence: US)
  Receive Date: 20150911
  Receipt Date: 20150911
  Transmission Date: 20151125
  Serious: Yes (Hospitalization)
  Sender: FDA-Public Use
  Company Number: US-ACTELION-A-NJ2015-123664

PATIENT
  Age: 68 Year
  Sex: Male

DRUGS (1)
  1. VELETRI [Suspect]
     Active Substance: EPOPROSTENOL
     Indication: PULMONARY ARTERIAL HYPERTENSION
     Dosage: 30 NG/KG, PER MIN
     Route: 048
     Dates: start: 20120328

REACTIONS (4)
  - Acute kidney injury [Unknown]
  - Asthenia [Unknown]
  - Cyst [Unknown]
  - Pulmonary hypertension [Unknown]
